FAERS Safety Report 5053283-1 (Version None)
Quarter: 2006Q3

REPORT INFORMATION
  Report Type: 
  Country: None (occurrence: None)
  Receive Date: 20060712
  Receipt Date: 20060626
  Transmission Date: 20061208
  Serious: Yes (Disabling)
  Sender: FDA-Public Use
  Company Number: 224341

PATIENT
  Age: 57 Year
  Sex: Female

DRUGS (6)
  1. HERCEPTIN [Suspect]
     Indication: BREAST CANCER
     Dosage: INTRAVENOUS
     Route: 042
     Dates: start: 20041115, end: 20051215
  2. DOCETAXEL [Concomitant]
  3. TAXOTERE [Concomitant]
  4. ZOMETA [Concomitant]
  5. EPIRUBICIN [Concomitant]
  6. TOREMIFENE (TOREMIFENE CITRATE) [Concomitant]

REACTIONS (4)
  - NEUROTOXICITY [None]
  - OPTIC NEUROPATHY [None]
  - PARAESTHESIA [None]
  - VISUAL ACUITY REDUCED [None]
